FAERS Safety Report 13330537 (Version 1)
Quarter: 2017Q1

REPORT INFORMATION
  Report Type: Spontaneous
  Country: CA (occurrence: CA)
  Receive Date: 20170314
  Receipt Date: 20170314
  Transmission Date: 20170428
  Serious: Yes (Disabling, Other)
  Sender: FDA-Public Use
  Company Number: CA-TEVA-747779ACC

PATIENT
  Age: 7 Year
  Sex: Male
  Weight: 22 kg

DRUGS (8)
  1. CISPLATIN INJECTION [Suspect]
     Active Substance: CISPLATIN
     Indication: NEUROBLASTOMA
     Route: 042
  2. VINCRISTINE SULFATE. [Suspect]
     Active Substance: VINCRISTINE SULFATE
     Indication: NEUROBLASTOMA
     Route: 042
  3. CARBOPLATIN. [Suspect]
     Active Substance: CARBOPLATIN
     Indication: NEUROBLASTOMA
     Route: 042
  4. CYCLOPHOSPHAMIDE. [Concomitant]
     Active Substance: CYCLOPHOSPHAMIDE
  5. MELPHALAN [Concomitant]
     Active Substance: MELPHALAN
  6. DINUTUXIMAB [Concomitant]
     Active Substance: DINUTUXIMAB
  7. ETOPOSIDE. [Concomitant]
     Active Substance: ETOPOSIDE
  8. DOXORUBICIN HYDROCHLORIDE INJECTION [Concomitant]
     Active Substance: DOXORUBICIN HYDROCHLORIDE

REACTIONS (2)
  - Ototoxicity [Not Recovered/Not Resolved]
  - Hearing aid user [Not Recovered/Not Resolved]
